FAERS Safety Report 22061513 (Version 1)
Quarter: 2023Q1

REPORT INFORMATION
  Report Type: Report from Study
  Country: CA (occurrence: CA)
  Receive Date: 20230304
  Receipt Date: 20230304
  Transmission Date: 20230418
  Serious: Yes (Hospitalization)
  Sender: FDA-Public Use
  Company Number: CA-ABBVIE-22K-028-4523041-00

PATIENT
  Sex: Female

DRUGS (2)
  1. HUMIRA [Suspect]
     Active Substance: ADALIMUMAB
     Indication: Crohn^s disease
     Route: 058
     Dates: start: 20140415
  2. IMURAN [Concomitant]
     Active Substance: AZATHIOPRINE
     Indication: Crohn^s disease
     Route: 048

REACTIONS (12)
  - Crohn^s disease [Recovering/Resolving]
  - Vomiting [Unknown]
  - Oropharyngeal pain [Not Recovered/Not Resolved]
  - Hypophagia [Unknown]
  - Electrolyte imbalance [Unknown]
  - Dysphonia [Not Recovered/Not Resolved]
  - Frequent bowel movements [Unknown]
  - Dyspepsia [Unknown]
  - Gastrooesophageal reflux disease [Unknown]
  - Chest discomfort [Unknown]
  - Abdominal distension [Unknown]
  - Short-bowel syndrome [Unknown]
